FAERS Safety Report 11203626 (Version 2)
Quarter: 2015Q3

REPORT INFORMATION
  Report Type: Spontaneous
  Country: IT (occurrence: IT)
  Receive Date: 20150619
  Receipt Date: 20150709
  Transmission Date: 20151125
  Serious: Yes (Other)
  Sender: FDA-Public Use
  Company Number: IT-BAYER-2015-324430

PATIENT
  Age: 33 Year
  Sex: Male
  Weight: 84 kg

DRUGS (1)
  1. KOGENATE [Suspect]
     Active Substance: ANTIHEMOPHILIC FACTOR, HUMAN RECOMBINANT
     Indication: HAEMORRHAGE PROPHYLAXIS
     Dosage: 2000 U DOSES CYCLIC
     Route: 042
     Dates: start: 20150301, end: 20150516

REACTIONS (5)
  - Hypotension [None]
  - Chest discomfort [None]
  - Hyperhidrosis [None]
  - Feeling hot [None]
  - Tachycardia [None]

NARRATIVE: CASE EVENT DATE: 20150301
